FAERS Safety Report 6104009-1 (Version None)
Quarter: 2009Q1

REPORT INFORMATION
  Report Type: 
  Country: None (occurrence: None)
  Receive Date: 20090305
  Receipt Date: 20090227
  Transmission Date: 20090719
  Serious: Yes (Life-Threatening, Hospitalization)
  Sender: FDA-Public Use
  Company Number: DE-ELI_LILLY_AND_COMPANY-DE200903000190

PATIENT
  Age: 58 Year
  Sex: Male

DRUGS (3)
  1. GEMZAR [Suspect]
     Indication: PANCREATIC CARCINOMA
     Dosage: 1500 MG/M2, UNK
     Route: 042
     Dates: start: 20070101
  2. CORTISONE [Concomitant]
  3. ANTIEMETICS AND ANTINAUSEANTS [Concomitant]

REACTIONS (2)
  - LUNG INFILTRATION [None]
  - PLEURAL EFFUSION [None]
